FAERS Safety Report 10238612 (Version 1)
Quarter: 2014Q2

REPORT INFORMATION
  Report Type: Spontaneous
  Country: US (occurrence: None)
  Receive Date: 20140613
  Receipt Date: 20140613
  Transmission Date: 20141212
  Serious: No
  Sender: FDA-Public Use
  Company Number: None

PATIENT
  Age: 66 Year
  Sex: Male

DRUGS (1)
  1. EXJADE [Suspect]
     Dosage: 1 MONTH FOR 2000 MG DOSE QD PO
     Route: 048

REACTIONS (3)
  - Diarrhoea [None]
  - Pyrexia [None]
  - Fatigue [None]
